FAERS Safety Report 9404688 (Version 1)
Quarter: 2013Q3

REPORT INFORMATION
  Report Type: Report from Study
  Country: US (occurrence: US)
  Receive Date: 20130717
  Receipt Date: 20130717
  Transmission Date: 20140515
  Serious: Yes (Hospitalization, Other)
  Sender: FDA-Public Use
  Company Number: PHEH2013US014738

PATIENT
  Age: 56 Year
  Sex: Female

DRUGS (7)
  1. GILENYA [Suspect]
     Indication: MULTIPLE SCLEROSIS
     Dosage: 0.5 MG, QD
     Route: 048
     Dates: start: 20110216
  2. NORVASC [Concomitant]
  3. VITAMIN D [Concomitant]
  4. OXYCONTIN [Concomitant]
  5. ZOFRAN [Concomitant]
  6. PRAMIPEXOLE [Concomitant]
  7. VALIUM [Concomitant]

REACTIONS (5)
  - Renal failure [Not Recovered/Not Resolved]
  - Blood pressure fluctuation [Not Recovered/Not Resolved]
  - Hyperhidrosis [Not Recovered/Not Resolved]
  - Chills [Not Recovered/Not Resolved]
  - Malaise [Not Recovered/Not Resolved]
